FAERS Safety Report 12289907 (Version 5)
Quarter: 2017Q4

REPORT INFORMATION
  Report Type: Report from Study
  Country: US (occurrence: US)
  Receive Date: 20160421
  Receipt Date: 20171214
  Transmission Date: 20180320
  Serious: Yes (Hospitalization)
  Sender: FDA-Public Use
  Company Number: US-ASTELLAS-2015US018334

PATIENT
  Age: 53 Year
  Sex: Male

DRUGS (62)
  1. BLINDED ASP0113 [Suspect]
     Active Substance: INVESTIGATIONAL PRODUCT
     Indication: IMMUNISATION
     Route: 030
     Dates: start: 20141121, end: 20141121
  2. BLINDED ASP0113 [Suspect]
     Active Substance: INVESTIGATIONAL PRODUCT
     Route: 030
     Dates: start: 20150225, end: 20150225
  3. BLINDED ASP0113 [Suspect]
     Active Substance: INVESTIGATIONAL PRODUCT
     Route: 030
     Dates: start: 20150526, end: 20150526
  4. TACROLIMUS. [Suspect]
     Active Substance: TACROLIMUS
     Route: 048
     Dates: start: 20150324, end: 20150326
  5. TACROLIMUS. [Suspect]
     Active Substance: TACROLIMUS
     Route: 048
     Dates: start: 20150406, end: 20150420
  6. TACROLIMUS. [Suspect]
     Active Substance: TACROLIMUS
     Route: 048
     Dates: start: 20150428, end: 20150504
  7. MYCOPHENOLATE MOFETIL. [Suspect]
     Active Substance: MYCOPHENOLATE MOFETIL
     Route: 048
     Dates: start: 20150604, end: 20150623
  8. NYSTATIN. [Concomitant]
     Active Substance: NYSTATIN
     Indication: ORAL PAIN
     Dosage: UNK UNK, UNKNOWN FREQ.
     Route: 048
     Dates: start: 20150518
  9. ACYCLOVIR                          /00587301/ [Concomitant]
     Active Substance: ACYCLOVIR
     Indication: PROPHYLAXIS
     Route: 048
     Dates: start: 20141121, end: 20141212
  10. BLINDED ASP0113 [Suspect]
     Active Substance: INVESTIGATIONAL PRODUCT
     Route: 030
     Dates: start: 20141219, end: 20141219
  11. TACROLIMUS. [Suspect]
     Active Substance: TACROLIMUS
     Route: 048
     Dates: start: 20150303, end: 20150309
  12. TACROLIMUS. [Suspect]
     Active Substance: TACROLIMUS
     Route: 048
     Dates: start: 20150310, end: 20150323
  13. TACROLIMUS. [Suspect]
     Active Substance: TACROLIMUS
     Route: 048
     Dates: start: 20150425, end: 20150427
  14. VITAMIN D                          /00107901/ [Concomitant]
     Active Substance: ERGOCALCIFEROL
     Indication: VITAMIN D DEFICIENCY
     Dosage: UNK UNK, UNKNOWN FREQ.
     Route: 048
     Dates: start: 20141113
  15. ACYCLOVIR                          /00587301/ [Concomitant]
     Active Substance: ACYCLOVIR
     Route: 048
     Dates: start: 20150302
  16. TACROLIMUS. [Suspect]
     Active Substance: TACROLIMUS
     Route: 048
     Dates: start: 20141209, end: 20141222
  17. TACROLIMUS. [Suspect]
     Active Substance: TACROLIMUS
     Route: 048
     Dates: start: 20150401, end: 20150405
  18. TACROLIMUS. [Suspect]
     Active Substance: TACROLIMUS
     Route: 048
     Dates: start: 20150616, end: 20150619
  19. TACROLIMUS. [Suspect]
     Active Substance: TACROLIMUS
     Route: 048
     Dates: start: 20150623
  20. OMEPRAZOLE. [Concomitant]
     Active Substance: OMEPRAZOLE
     Indication: DYSPEPSIA
     Dosage: UNK UNK, UNKNOWN FREQ.
     Route: 048
     Dates: start: 20141128
  21. OXYCODONE [Concomitant]
     Active Substance: OXYCODONE
     Indication: ARTHRALGIA
  22. ELIQUIS [Concomitant]
     Active Substance: APIXABAN
     Indication: THROMBOSIS
     Dosage: UNK UNK, UNKNOWN FREQ.
     Route: 048
     Dates: start: 20150122
  23. ACETAMINOPHEN. [Concomitant]
     Active Substance: ACETAMINOPHEN
     Indication: PNEUMONIA
     Dosage: UNK UNK, UNKNOWN FREQ.
     Route: 048
     Dates: start: 20150324
  24. TRIAMCINOLONE [Concomitant]
     Active Substance: TRIAMCINOLONE
     Indication: ACUTE GRAFT VERSUS HOST DISEASE IN SKIN
     Dosage: UNK UNK, UNKNOWN FREQ.
     Route: 061
     Dates: start: 20150414
  25. ACYCLOVIR                          /00587301/ [Concomitant]
     Active Substance: ACYCLOVIR
     Route: 048
     Dates: start: 20141212, end: 20150302
  26. TACROLIMUS. [Suspect]
     Active Substance: TACROLIMUS
     Route: 048
     Dates: start: 20150327, end: 20150331
  27. ATIVAN [Concomitant]
     Active Substance: LORAZEPAM
     Indication: VOMITING
  28. OXYCODONE [Concomitant]
     Active Substance: OXYCODONE
     Indication: ARTHRALGIA
  29. ELIQUIS [Concomitant]
     Active Substance: APIXABAN
     Indication: HYPERCOAGULATION
  30. TRAMADOL. [Concomitant]
     Active Substance: TRAMADOL
     Indication: PAIN
  31. ZOFRAN [Concomitant]
     Active Substance: ONDANSETRON HYDROCHLORIDE
     Indication: NAUSEA
     Dosage: UNK UNK, UNKNOWN FREQ.
     Route: 048
     Dates: start: 20141121
  32. TACROLIMUS. [Suspect]
     Active Substance: TACROLIMUS
     Indication: PROPHYLAXIS AGAINST GRAFT VERSUS HOST DISEASE
     Route: 048
     Dates: start: 20150505, end: 20150606
  33. TACROLIMUS. [Suspect]
     Active Substance: TACROLIMUS
     Route: 048
     Dates: start: 20141122, end: 20141128
  34. MYCOPHENOLATE MOFETIL. [Suspect]
     Active Substance: MYCOPHENOLATE MOFETIL
     Route: 048
     Dates: start: 20141125, end: 20141226
  35. MYCOPHENOLATE MOFETIL. [Suspect]
     Active Substance: MYCOPHENOLATE MOFETIL
     Route: 048
     Dates: start: 20150623, end: 20150630
  36. MYCOPHENOLATE MOFETIL. [Suspect]
     Active Substance: MYCOPHENOLATE MOFETIL
     Route: 048
     Dates: start: 20150705
  37. OMEPRAZOLE. [Concomitant]
     Active Substance: OMEPRAZOLE
     Indication: GASTROOESOPHAGEAL REFLUX DISEASE
  38. MUPIROCIN. [Concomitant]
     Active Substance: MUPIROCIN
     Indication: CHRONIC SINUSITIS
     Dosage: UNK UNK, UNKNOWN FREQ.
     Route: 061
     Dates: start: 20141001
  39. ATIVAN [Concomitant]
     Active Substance: LORAZEPAM
     Indication: NAUSEA
     Dosage: UNK UNK, UNKNOWN FREQ.
     Route: 048
     Dates: start: 20141121
  40. DEXAMETHASONE. [Concomitant]
     Active Substance: DEXAMETHASONE
     Indication: ORAL PAIN
     Dosage: UNK UNK, UNKNOWN FREQ.
     Route: 060
     Dates: start: 20150504
  41. PENICILLIN VK [Concomitant]
     Active Substance: PENICILLIN V POTASSIUM
     Indication: BACTERIAL INFECTION
     Dosage: UNK UNK, UNKNOWN FREQ.
     Route: 048
     Dates: start: 20150420
  42. IBRUTINIB [Concomitant]
     Active Substance: IBRUTINIB
     Indication: CHRONIC LYMPHOCYTIC LEUKAEMIA
     Dosage: UNK UNK, UNKNOWN FREQ.
     Route: 048
     Dates: start: 20150406, end: 20150526
  43. BLINDED ASP0113 [Suspect]
     Active Substance: INVESTIGATIONAL PRODUCT
     Route: 030
     Dates: start: 20150123, end: 20150123
  44. TACROLIMUS. [Suspect]
     Active Substance: TACROLIMUS
     Route: 048
     Dates: start: 20141205, end: 20141208
  45. TACROLIMUS. [Suspect]
     Active Substance: TACROLIMUS
     Route: 048
     Dates: start: 20141223, end: 20150108
  46. TACROLIMUS. [Suspect]
     Active Substance: TACROLIMUS
     Route: 048
     Dates: start: 20150117, end: 20150206
  47. TACROLIMUS. [Suspect]
     Active Substance: TACROLIMUS
     Route: 048
     Dates: start: 20150421, end: 20150424
  48. TACROLIMUS. [Suspect]
     Active Substance: TACROLIMUS
     Route: 048
     Dates: start: 20150606, end: 20150616
  49. TACROLIMUS. [Suspect]
     Active Substance: TACROLIMUS
     Route: 048
     Dates: start: 20150619, end: 20150623
  50. OXYCODONE [Concomitant]
     Active Substance: OXYCODONE
     Indication: PAIN
     Dosage: UNK UNK, UNKNOWN FREQ.
     Route: 048
     Dates: start: 20141121
  51. MAGNESIUM SULFATE. [Concomitant]
     Active Substance: MAGNESIUM SULFATE
     Indication: HYPOMAGNESAEMIA
     Dosage: UNK UNK, UNKNOWN FREQ.
     Route: 042
     Dates: start: 20150123
  52. MULTIVITAMIN                       /00097801/ [Concomitant]
     Active Substance: VITAMINS
     Indication: MALNUTRITION
     Dosage: UNK UNK, UNKNOWN FREQ.
     Route: 048
     Dates: start: 20141205
  53. DELSYM [Concomitant]
     Active Substance: DEXTROMETHORPHAN
     Indication: COUGH
     Dosage: UNK UNK, UNKNOWN FREQ.
     Route: 048
     Dates: start: 20150327
  54. DAPSONE. [Concomitant]
     Active Substance: DAPSONE
     Indication: PNEUMOCYSTIS JIROVECII PNEUMONIA
     Dosage: UNK UNK, UNKNOWN FREQ.
     Route: 048
     Dates: start: 20150330
  55. TACROLIMUS. [Suspect]
     Active Substance: TACROLIMUS
     Route: 048
     Dates: start: 20141128, end: 20141205
  56. TACROLIMUS. [Suspect]
     Active Substance: TACROLIMUS
     Route: 048
     Dates: start: 20150207, end: 20150223
  57. TACROLIMUS. [Suspect]
     Active Substance: TACROLIMUS
     Route: 048
     Dates: start: 20150224, end: 20150302
  58. MYCOPHENOLATE MOFETIL. [Suspect]
     Active Substance: MYCOPHENOLATE MOFETIL
     Route: 048
     Dates: start: 20150630, end: 20150705
  59. ZOFRAN [Concomitant]
     Active Substance: ONDANSETRON HYDROCHLORIDE
     Indication: VOMITING
  60. TACROLIMUS. [Suspect]
     Active Substance: TACROLIMUS
     Route: 048
     Dates: start: 20150109, end: 20150116
  61. MYCOPHENOLATE MOFETIL. [Suspect]
     Active Substance: MYCOPHENOLATE MOFETIL
     Indication: PROPHYLAXIS AGAINST GRAFT VERSUS HOST DISEASE
     Route: 048
     Dates: start: 20150504, end: 20150604
  62. TRAMADOL. [Concomitant]
     Active Substance: TRAMADOL
     Indication: HEADACHE
     Dosage: UNK UNK, UNKNOWN FREQ.
     Route: 048
     Dates: start: 20141205

REACTIONS (3)
  - Hypoxia [Recovered/Resolved with Sequelae]
  - Lower respiratory tract infection bacterial [Recovered/Resolved with Sequelae]
  - Bronchopulmonary aspergillosis [Recovered/Resolved with Sequelae]

NARRATIVE: CASE EVENT DATE: 20150526
